FAERS Safety Report 11753043 (Version 3)
Quarter: 2016Q1

REPORT INFORMATION
  Report Type: Report from Study
  Country: US (occurrence: US)
  Receive Date: 20151119
  Receipt Date: 20160208
  Transmission Date: 20160525
  Serious: No
  Sender: FDA-Public Use
  Company Number: PHEH2015US024002

PATIENT
  Sex: Female
  Weight: 122.45 kg

DRUGS (1)
  1. GILENYA [Suspect]
     Active Substance: FINGOLIMOD HYDROCHLORIDE
     Indication: MULTIPLE SCLEROSIS
     Dosage: 0.5 MG, QD
     Route: 048
     Dates: start: 20150615

REACTIONS (7)
  - Paraesthesia [Unknown]
  - Influenza A virus test positive [Unknown]
  - Hypoaesthesia [Unknown]
  - Acne [Unknown]
  - Eye pain [Unknown]
  - Pruritus generalised [Unknown]
  - Grip strength decreased [Unknown]
